FAERS Safety Report 18754551 (Version 2)
Quarter: 2022Q1

REPORT INFORMATION
  Report Type: Spontaneous
  Country: DE (occurrence: DE)
  Receive Date: 20210119
  Receipt Date: 20220215
  Transmission Date: 20220424
  Serious: Yes (Congenital Anomaly, Other)
  Sender: FDA-Public Use
  Company Number: DE-EMBRYOTOX-201908533-B

PATIENT
  Sex: Female

DRUGS (8)
  1. GABAPENTIN [Suspect]
     Active Substance: GABAPENTIN
     Indication: Tension headache
     Dosage: 900 MILLIGRAM, DAILY(MATERNAL DOSE: 900 [MG/D (300-0-600 MG) ] )
     Route: 064
     Dates: start: 20190615, end: 20190716
  2. GABAPENTIN [Suspect]
     Active Substance: GABAPENTIN
     Indication: Foetal exposure during pregnancy
  3. ESCITALOPRAM [Suspect]
     Active Substance: ESCITALOPRAM OXALATE
     Indication: Tension headache
     Dosage: 5 MILLIGRAM, ONCE A DAY
     Route: 064
     Dates: start: 20190615, end: 20190716
  4. ESCITALOPRAM [Suspect]
     Active Substance: ESCITALOPRAM OXALATE
     Indication: Foetal exposure during pregnancy
  5. EUTHYROX [Concomitant]
     Active Substance: LEVOTHYROXINE SODIUM
     Indication: Thyroid hormone replacement therapy
     Dosage: 150 MICROGRAM, DAILY (UP TO 112 ?G / D)]
     Route: 064
     Dates: start: 20190615, end: 20190910
  6. EUTHYROX [Concomitant]
     Active Substance: LEVOTHYROXINE SODIUM
     Indication: Foetal exposure during pregnancy
  7. PROGESTERONE [Concomitant]
     Active Substance: PROGESTERONE
     Indication: Foetal exposure during pregnancy
     Dosage: 200 MILLIGRAM, ONCE A DAY
     Route: 064
     Dates: start: 20190730, end: 20190801
  8. PROGESTERONE [Concomitant]
     Active Substance: PROGESTERONE
     Indication: Haemorrhage in pregnancy

REACTIONS (4)
  - Congenital absence of vertebra [Unknown]
  - Gastroschisis [Unknown]
  - Subdural hygroma [Unknown]
  - Foetal exposure during pregnancy [Unknown]
